FAERS Safety Report 9858733 (Version 1)
Quarter: 2014Q1

REPORT INFORMATION
  Report Type: Spontaneous
  Country: US (occurrence: US)
  Receive Date: 20140131
  Receipt Date: 20140131
  Transmission Date: 20141002
  Serious: Yes (Other)
  Sender: FDA-Public Use
  Company Number: US-ASTRAZENECA-2014SE05843

PATIENT
  Sex: Female

DRUGS (1)
  1. CRESTOR [Suspect]
     Route: 048

REACTIONS (5)
  - Blood triglycerides increased [Unknown]
  - Blood cholesterol increased [Unknown]
  - Myocardial infarction [Unknown]
  - Cardiac disorder [Unknown]
  - Mental disorder [Unknown]
